FAERS Safety Report 8975531 (Version 1)
Quarter: 2012Q4

REPORT INFORMATION
  Report Type: 
  Country: US (occurrence: US)
  Receive Date: 20121219
  Receipt Date: 20121219
  Transmission Date: 20130627
  Serious: No
  Sender: FDA-Public Use
  Company Number: US-VERTEX PHARMACEUTICALS INC.-2012-026264

PATIENT
  Age: 57 Year
  Sex: Female
  Weight: 50 kg

DRUGS (6)
  1. INCIVEK [Suspect]
     Indication: HEPATITIS C
     Dosage: 750 mg, tid
     Route: 048
     Dates: start: 201211
  2. RIBAVIRIN [Suspect]
     Indication: HEPATITIS C
     Dosage: 2 tabs am, 3 tabs pm
     Dates: start: 201211
  3. PEGASYS [Suspect]
     Indication: HEPATITIS C
     Dosage: 180 ?g, qw
     Route: 058
     Dates: start: 201211
  4. COMPLERA [Concomitant]
     Indication: HIV INFECTION
     Dosage: 1 DF, qd
  5. ALDACTONE                          /00006201/ [Concomitant]
     Indication: BLOOD PRESSURE
     Dosage: 25 mg, qd
  6. AZITHROMYCIN [Concomitant]
     Indication: BRONCHITIS
     Dosage: UNK
     Dates: start: 20121212, end: 20121215

REACTIONS (6)
  - Bronchitis [Not Recovered/Not Resolved]
  - Cough [Not Recovered/Not Resolved]
  - Malaise [Not Recovered/Not Resolved]
  - Off label use [Unknown]
  - Fatigue [Not Recovered/Not Resolved]
  - Vomiting [Recovered/Resolved]
